FAERS Safety Report 4798875-X (Version None)
Quarter: 2005Q4

REPORT INFORMATION
  Report Type: 
  Country: None (occurrence: None)
  Receive Date: 20051014
  Receipt Date: 20051011
  Transmission Date: 20060501
  Serious: Yes (Other)
  Sender: FDA-Public Use
  Company Number: 419306

PATIENT
  Age: 85 Year
  Sex: Female

DRUGS (7)
  1. ARTIST [Suspect]
     Indication: ATRIAL FIBRILLATION
     Dosage: 10MG PER DAY
     Route: 048
     Dates: start: 20050507, end: 20050607
  2. LANIRAPID [Suspect]
     Indication: DRUG USE FOR UNKNOWN INDICATION
     Dosage: .05MG PER DAY
     Route: 048
     Dates: start: 20050505, end: 20050607
  3. PILSICAINIDE HYDROCHLORIDE [Suspect]
     Indication: DRUG USE FOR UNKNOWN INDICATION
     Dosage: 50MG THREE TIMES PER DAY
     Route: 048
     Dates: start: 20050506, end: 20050607
  4. ALDACTONE [Concomitant]
     Dates: start: 20050505
  5. BLOPRESS [Concomitant]
     Indication: DRUG USE FOR UNKNOWN INDICATION
     Dates: start: 20050505
  6. DOCARPAMINE [Concomitant]
     Indication: DRUG USE FOR UNKNOWN INDICATION
     Dates: start: 20050523, end: 20050603
  7. LASIX [Concomitant]
     Indication: DRUG USE FOR UNKNOWN INDICATION
     Dates: start: 20050505

REACTIONS (1)
  - BRADYCARDIA [None]
